FAERS Safety Report 7477920-7 (Version None)
Quarter: 2011Q2

REPORT INFORMATION
  Report Type: 
  Country: None (occurrence: None)
  Receive Date: 20110513
  Receipt Date: 20091031
  Transmission Date: 20111010
  Serious: Yes (Other)
  Sender: FDA-Public Use
  Company Number: US-BAYER-200937895NA

PATIENT
  Age: 82 Year
  Sex: Female
  Weight: 55.6 kg

DRUGS (23)
  1. TRASYLOL [Suspect]
     Indication: CORONARY ARTERY BYPASS
     Dosage: 1 ML INITIAL TEST DOSE
     Route: 042
     Dates: start: 20060313, end: 20060313
  2. LASIX [Concomitant]
     Dosage: 20 MG DAILY FOR ONE WEEK
     Route: 048
     Dates: start: 20060317
  3. ACETAMINOPHEN [Concomitant]
     Dosage: 650 MG
     Route: 048
  4. ATENOLOL [Concomitant]
     Dosage: 25 MG, QD
     Route: 048
  5. HEPARIN [Concomitant]
     Dosage: 47000 UNITS
     Route: 042
     Dates: start: 20060313, end: 20060313
  6. AMIODARONE HCL [Concomitant]
     Dosage: 150 MG IV X 2 DOSES
     Dates: start: 20060318
  7. ACETYLSALICYLIC ACID SRT [Concomitant]
     Dosage: 81 MG, UNK
     Route: 048
  8. LACTATED RINGER'S [Concomitant]
     Dosage: 6500 ML
     Route: 042
     Dates: start: 20060313, end: 20060313
  9. CARDIZEM [Concomitant]
     Dosage: 10 MG IV X 2 DOSES
     Route: 042
     Dates: start: 20060318
  10. CONTRAST MEDIA [Concomitant]
     Indication: COMPUTERISED TOMOGRAM
     Dosage: UNK
     Dates: start: 20060317
  11. TRASYLOL [Suspect]
     Dosage: 200 ML FOLLOWED BY 50 ML/HR
     Dates: start: 20060313, end: 20060313
  12. EPINEPHRINE [Concomitant]
     Dosage: UNK
     Route: 042
     Dates: start: 20060314
  13. PIROXICAM [Concomitant]
     Route: 048
  14. ANCEF [Concomitant]
     Dosage: 1 G
     Route: 042
     Dates: start: 20060313, end: 20060313
  15. CIPRO [Concomitant]
     Dosage: 250 MG TWICE DAILY FOR TEN DAYS
     Route: 048
     Dates: start: 20060120
  16. LISINOPRIL [Concomitant]
     Dosage: 10 MG, QD
     Route: 048
     Dates: start: 19950101
  17. ACETYLSALICYLIC ACID SRT [Concomitant]
     Dosage: 325 MG, UNK
     Route: 048
  18. DOXYCYCLINE [Concomitant]
     Dosage: 100 MG TWICE DAILY FOR TEN DAYS
     Route: 048
     Dates: start: 20060210
  19. LOVASTATIN [Concomitant]
     Dosage: 20 MG
     Route: 048
     Dates: start: 20060310
  20. RED BLOOD CELLS, CONCENTRATED [Concomitant]
     Dosage: 1 U, UNK
     Route: 042
     Dates: start: 20060313
  21. NITROGLYCERIN [Concomitant]
     Dosage: UNK
     Route: 042
     Dates: start: 20060313
  22. SODIUM BICARBONATE [Concomitant]
     Dosage: 30 MEQ
     Route: 042
     Dates: start: 20060313, end: 20060313
  23. CONTRAST MEDIA [Concomitant]
     Indication: CATHETERISATION CARDIAC
     Dosage: UNK
     Dates: start: 20060310

REACTIONS (9)
  - EMOTIONAL DISTRESS [None]
  - ANXIETY [None]
  - PAIN [None]
  - INJURY [None]
  - STRESS [None]
  - FEAR [None]
  - RENAL INJURY [None]
  - RENAL FAILURE [None]
  - UNEVALUABLE EVENT [None]
